FAERS Safety Report 6239886-7 (Version None)
Quarter: 2009Q2

REPORT INFORMATION
  Report Type: 
  Country: None (occurrence: None)
  Receive Date: 20090618
  Receipt Date: 20090618
  Transmission Date: 20091009
  Serious: Yes (Other)
  Sender: FDA-Public Use
  Company Number: None

PATIENT
  Sex: Female
  Weight: 63.5036 kg

DRUGS (1)
  1. BUPROPION HCL [Suspect]
     Indication: DEPRESSION
     Dosage: 300MG 1 DAILY PO
     Route: 048
     Dates: start: 20090427, end: 20090603

REACTIONS (4)
  - HYPOAESTHESIA [None]
  - HYPOAESTHESIA ORAL [None]
  - PRODUCT SUBSTITUTION ISSUE [None]
  - VERTIGO [None]
